FAERS Safety Report 7454953-8 (Version None)
Quarter: 2011Q2

REPORT INFORMATION
  Report Type: 
  Country: None (occurrence: None)
  Receive Date: 20110503
  Receipt Date: 20110426
  Transmission Date: 20111010
  Serious: Yes (Other)
  Sender: FDA-Public Use
  Company Number: ES-BRISTOL-MYERS SQUIBB COMPANY-15692163

PATIENT
  Age: 57 Year
  Sex: Male

DRUGS (4)
  1. ATAZANAVIR [Suspect]
     Indication: ANTIRETROVIRAL THERAPY
  2. ABACAVIR [Suspect]
     Indication: ANTIRETROVIRAL THERAPY
  3. LAMIVUDINE [Suspect]
     Indication: ANTIRETROVIRAL THERAPY
  4. RITONAVIR [Suspect]
     Indication: ANTIRETROVIRAL THERAPY

REACTIONS (2)
  - DRUG RESISTANCE [None]
  - ENCEPHALITIS VIRAL [None]
